FAERS Safety Report 4336289-7 (Version None)
Quarter: 2004Q2

REPORT INFORMATION
  Report Type: 
  Country: None (occurrence: None)
  Receive Date: 20040409
  Receipt Date: 20040409
  Transmission Date: 20050107
  Serious: Yes (Hospitalization, Other)
  Sender: FDA-Public Use
  Company Number: None

PATIENT
  Age: 79 Year
  Sex: Male

DRUGS (10)
  1. IRON DEXTRAN [Suspect]
     Indication: ANAEMIA
     Dosage: IV
     Route: 042
  2. ASPIRIN [Concomitant]
  3. B12 [Concomitant]
  4. BUPROPION HCL [Concomitant]
  5. ISOSORBIDE [Concomitant]
  6. METOPROLOL [Concomitant]
  7. ALBUTEROL [Concomitant]
  8. TERAZOSIN HCL [Concomitant]
  9. CAPTOPRIL [Concomitant]
  10. LASIX [Concomitant]

REACTIONS (2)
  - CARDIAC FAILURE CONGESTIVE [None]
  - DYSPNOEA [None]
